FAERS Safety Report 22147898 (Version 1)
Quarter: 2023Q1

REPORT INFORMATION
  Report Type: Spontaneous
  Country: GB (occurrence: GB)
  Receive Date: 20230328
  Receipt Date: 20230328
  Transmission Date: 20230417
  Serious: Yes (Other)
  Sender: FDA-Public Use
  Company Number: None

PATIENT
  Age: 72 Year
  Sex: Female
  Weight: 66 kg

DRUGS (10)
  1. LANSOPRAZOLE [Suspect]
     Active Substance: LANSOPRAZOLE
     Indication: Ill-defined disorder
     Dosage: 30 MILLIGRAM, QD
     Route: 065
     Dates: start: 20220309
  2. LANSOPRAZOLE [Suspect]
     Active Substance: LANSOPRAZOLE
     Dosage: UNK (START DATE: 21-APR-2022)
     Route: 065
  3. CHLORPHENIRAMINE MALEATE [Concomitant]
     Active Substance: CHLORPHENIRAMINE MALEATE
     Indication: Ill-defined disorder
     Dosage: 1 DOSAGE FORM, TID(UP TO THREE TIMES A DAY IF REQU)
     Route: 065
     Dates: start: 20220310, end: 20220317
  4. DOXAZOSIN [Concomitant]
     Active Substance: DOXAZOSIN MESYLATE
     Indication: Ill-defined disorder
     Dosage: 1 DOSAGE FORM, QD(TAKE ONE DAILY)
     Route: 065
     Dates: start: 20210726
  5. LANSOPRAZOLE [Concomitant]
     Active Substance: LANSOPRAZOLE
     Indication: Ill-defined disorder
     Dosage: 1 DOSAGE FORM, QD(TAKE ONE ONCE DAILY)
     Route: 065
     Dates: start: 20220309, end: 20220421
  6. LERCANIDIPINE HYDROCHLORIDE [Concomitant]
     Active Substance: LERCANIDIPINE HYDROCHLORIDE
     Indication: Ill-defined disorder
     Dosage: 1 DOSAGE FORM, QD(TAKE ONE DAILY)
     Route: 065
     Dates: start: 20170227
  7. OMEPRAZOLE [Concomitant]
     Active Substance: OMEPRAZOLE
     Indication: Ill-defined disorder
     Dosage: 1 DOSAGE FORM, QD (TAKE ONE DAILY, START DATE: 21-APR-2022)
     Route: 065
  8. CALCIUM CARBONATE\SODIUM ALGINATE\SODIUM BICARBONATE [Concomitant]
     Active Substance: CALCIUM CARBONATE\SODIUM ALGINATE\SODIUM BICARBONATE
     Indication: Ill-defined disorder
     Dosage: 10 MILLILITER, QID(2X5ML SPOON 4 TIMES/DAY PRN)
     Route: 065
     Dates: start: 20220309
  9. ALBUTEROL [Concomitant]
     Active Substance: ALBUTEROL
     Indication: Ill-defined disorder
     Dosage: UNK, INHALE 1 OR 2 PUFFS WHEN NEEDED (RESPIRATORY)
     Route: 065
     Dates: start: 20110106
  10. TRELEGY ELLIPTA [Concomitant]
     Active Substance: FLUTICASONE FUROATE\UMECLIDINIUM BROMIDE\VILANTEROL TRIFENATATE
     Indication: Ill-defined disorder
     Dosage: 1 DOSAGE FORM, QD (INHALE 1 DOSE DAILY)(RESPIRATORY)
     Route: 065
     Dates: start: 20210520

REACTIONS (3)
  - Burning sensation [Recovering/Resolving]
  - Muscle spasms [Recovered/Resolved]
  - Rash [Recovering/Resolving]

NARRATIVE: CASE EVENT DATE: 20220402
